FAERS Safety Report 8436844-9 (Version None)
Quarter: 2012Q2

REPORT INFORMATION
  Report Type: 
  Country: None (occurrence: None)
  Receive Date: 20120614
  Receipt Date: 20120601
  Transmission Date: 20120825
  Serious: Yes (Disabling, Other)
  Sender: FDA-Public Use
  Company Number: US-BAYER-2012-058330

PATIENT
  Sex: Male

DRUGS (1)
  1. CIPROFLOXACIN HCL [Suspect]
     Indication: INFECTION
     Dosage: UNK
     Dates: start: 20100201, end: 20100101

REACTIONS (13)
  - ARTHRALGIA [None]
  - ROTATOR CUFF SYNDROME [None]
  - TENDON PAIN [None]
  - TENDON DISORDER [None]
  - LIGAMENT DISORDER [None]
  - HYPOTHYROIDISM [None]
  - NERVE INJURY [None]
  - BURNING SENSATION [None]
  - PAIN IN EXTREMITY [None]
  - BURSITIS [None]
  - NEUROPATHY PERIPHERAL [None]
  - TINNITUS [None]
  - OPTIC NERVE INFARCTION [None]
